FAERS Safety Report 10018199 (Version 2)
Quarter: 2014Q1

REPORT INFORMATION
  Report Type: Spontaneous
  Country: US (occurrence: US)
  Receive Date: 20140318
  Receipt Date: 20140318
  Transmission Date: 20141002
  Serious: Yes (Other)
  Sender: FDA-Public Use
  Company Number: US-BRISTOL-MYERS SQUIBB COMPANY-19216001

PATIENT
  Age: 66 Year
  Sex: Male

DRUGS (7)
  1. ERBITUX [Suspect]
     Indication: COLORECTAL CANCER METASTATIC
     Dosage: 800MG INITIAL DOSE THEN 500MG 3/WK
     Route: 042
     Dates: start: 20130806, end: 2013
  2. LANTUS [Concomitant]
     Dosage: 1DF=45 UNITS AT BEDTIME
  3. NOVOLOG [Concomitant]
     Dosage: 1DF=45 UNITS EVERY MRNG
  4. BENADRYL [Concomitant]
     Route: 042
  5. PEPCID [Concomitant]
     Route: 042
  6. HYDROCORTISONE [Concomitant]
     Route: 042
  7. MAGNESIUM [Concomitant]
     Route: 042

REACTIONS (1)
  - Infusion related reaction [Recovered/Resolved]
